FAERS Safety Report 7907569-0 (Version None)
Quarter: 2011Q4

REPORT INFORMATION
  Report Type: 
  Country: None (occurrence: None)
  Receive Date: 20111110
  Receipt Date: 20111102
  Transmission Date: 20120403
  Serious: Yes (Other)
  Sender: FDA-Public Use
  Company Number: PHHY2011AR097194

PATIENT
  Sex: Female

DRUGS (1)
  1. ZOLEDRONOC ACID [Suspect]
     Indication: OSTEOPOROSIS
     Dosage: ONE AMPOULE PER YEAR
     Dates: start: 20090909

REACTIONS (4)
  - TENDON RUPTURE [None]
  - FRACTURE [None]
  - MUSCULOSKELETAL PAIN [None]
  - TENDON DISORDER [None]
